FAERS Safety Report 11702904 (Version 1)
Quarter: 2015Q4

REPORT INFORMATION
  Report Type: Spontaneous
  Country: US (occurrence: None)
  Receive Date: 20151105
  Receipt Date: 20151105
  Transmission Date: 20160304
  Serious: No
  Sender: FDA-Public Use
  Company Number: US-MDT-ADR-2015-02093

PATIENT
  Age: 61 Year
  Sex: Male

DRUGS (1)
  1. LIORESAL [Suspect]
     Active Substance: BACLOFEN
     Indication: MUSCLE SPASTICITY
     Dosage: 100MCG/DAY

REACTIONS (5)
  - Therapy change [None]
  - Musculoskeletal stiffness [None]
  - Unevaluable event [None]
  - No therapeutic response [None]
  - Tremor [None]
